FAERS Safety Report 10257497 (Version 1)
Quarter: 2014Q2

REPORT INFORMATION
  Report Type: Spontaneous
  Country: US (occurrence: US)
  Receive Date: 20140625
  Receipt Date: 20140625
  Transmission Date: 20141212
  Serious: No
  Sender: FDA-Public Use
  Company Number: US-GLAXOSMITHKLINE-A1040643A

PATIENT
  Age: 76 Year
  Sex: Male
  Weight: 99.1 kg

DRUGS (3)
  1. VERAMYST [Suspect]
     Indication: SINUS DISORDER
     Dosage: 1SPR CYCLIC
     Route: 045
  2. LIPITOR [Concomitant]
  3. PREVACID [Concomitant]

REACTIONS (5)
  - Nasal congestion [Recovered/Resolved]
  - Drug ineffective [Unknown]
  - Product quality issue [Unknown]
  - Headache [Recovered/Resolved]
  - Dry mouth [Recovered/Resolved]
